FAERS Safety Report 8879069 (Version 1)
Quarter: 2012Q4

REPORT INFORMATION
  Report Type: Spontaneous
  Country: US (occurrence: None)
  Receive Date: 20121031
  Receipt Date: 20121031
  Transmission Date: 20130627
  Serious: No
  Sender: FDA-Public Use
  Company Number: None

PATIENT
  Age: 97 Year
  Sex: Male
  Weight: 67.6 kg

DRUGS (1)
  1. POTASSIUM CHLORIDE [Suspect]
     Indication: POTASSIUM SUPPLEMENTATION
     Route: 048
     Dates: start: 20120817, end: 20121024

REACTIONS (2)
  - Hyperkalaemia [None]
  - Renal failure [None]
